FAERS Safety Report 6546712-5 (Version None)
Quarter: 2010Q1

REPORT INFORMATION
  Report Type: 
  Country: None (occurrence: None)
  Receive Date: 20100122
  Receipt Date: 20100118
  Transmission Date: 20100710
  Serious: Yes (Other)
  Sender: FDA-Public Use
  Company Number: CA-ROCHE-680473

PATIENT
  Sex: Male
  Weight: 200 kg

DRUGS (1)
  1. BEVACIZUMAB [Suspect]
     Indication: GASTROINTESTINAL CARCINOMA
     Dosage: RECEIVED FOUR DOSES
     Route: 042
     Dates: start: 20091118, end: 20091230

REACTIONS (1)
  - DRUG INEFFECTIVE [None]
